FAERS Safety Report 13055499 (Version 1)
Quarter: 2016Q4

REPORT INFORMATION
  Report Type: Spontaneous
  Country: AU (occurrence: AU)
  Receive Date: 20161222
  Receipt Date: 20161222
  Transmission Date: 20170207
  Serious: Yes (Other)
  Sender: FDA-Public Use
  Company Number: AU-009507513-1612AUS010569

PATIENT
  Sex: Male
  Weight: 71 kg

DRUGS (1)
  1. KEYTRUDA [Suspect]
     Active Substance: PEMBROLIZUMAB
     Indication: NASAL CAVITY CANCER
     Dosage: UNK

REACTIONS (4)
  - Metastases to spine [Unknown]
  - Drug effect incomplete [Unknown]
  - Off label use [Unknown]
  - Pain [Unknown]
